FAERS Safety Report 6355693-9 (Version None)
Quarter: 2009Q3

REPORT INFORMATION
  Report Type: 
  Country: None (occurrence: None)
  Receive Date: 20090910
  Receipt Date: 20090903
  Transmission Date: 20100115
  Serious: Yes (Hospitalization, Other)
  Sender: FDA-Public Use
  Company Number: 2009SP006214

PATIENT
  Age: 64 Year
  Sex: Female
  Weight: 52 kg

DRUGS (1)
  1. TEMODAL [Suspect]
     Indication: GLIOBLASTOMA
     Dosage: 55 GM;
     Dates: start: 20050101, end: 20090101

REACTIONS (6)
  - CONFUSIONAL STATE [None]
  - ESCHERICHIA URINARY TRACT INFECTION [None]
  - HYPERCHOLESTEROLAEMIA [None]
  - LEUKOENCEPHALOPATHY [None]
  - OPTIC ATROPHY [None]
  - PSYCHOTIC DISORDER [None]
